FAERS Safety Report 6969528-4 (Version None)
Quarter: 2010Q3

REPORT INFORMATION
  Report Type: 
  Country: None (occurrence: None)
  Receive Date: 20100907
  Receipt Date: 20100907
  Transmission Date: 20110219
  Serious: Yes (Disabling, Other)
  Sender: FDA-Public Use
  Company Number: None

PATIENT
  Age: 57 Year
  Sex: Female
  Weight: 76.2043 kg

DRUGS (1)
  1. ITRACONAZOLE [Suspect]
     Indication: ONYCHOMYCOSIS
     Dosage: 2 EACH MORNING
     Dates: start: 20100827, end: 20100901

REACTIONS (5)
  - ABDOMINAL PAIN UPPER [None]
  - INSOMNIA [None]
  - PRURITUS [None]
  - RASH [None]
  - SCRATCH [None]
